FAERS Safety Report 12893720 (Version 3)
Quarter: 2021Q4

REPORT INFORMATION
  Report Type: Spontaneous
  Country: US (occurrence: US)
  Receive Date: 20161028
  Receipt Date: 20211222
  Transmission Date: 20220303
  Serious: Yes (Hospitalization)
  Sender: FDA-Public Use
  Company Number: US-JNJFOC-20161024622

PATIENT
  Age: 52 Year
  Sex: Female

DRUGS (10)
  1. INVOKANA [Suspect]
     Active Substance: CANAGLIFLOZIN
     Indication: Diabetes mellitus management
     Route: 048
     Dates: start: 20131206, end: 20151128
  2. METFORMIN [Suspect]
     Active Substance: METFORMIN HYDROCHLORIDE
     Indication: Diabetes mellitus inadequate control
     Route: 048
     Dates: start: 2008, end: 2016
  3. IRON [Concomitant]
     Active Substance: IRON
     Indication: Anaemia
     Route: 065
     Dates: start: 2015
  4. LOSARTAN [Concomitant]
     Active Substance: LOSARTAN
     Indication: Blood pressure measurement
     Route: 065
     Dates: start: 2014
  5. LOSARTAN [Concomitant]
     Active Substance: LOSARTAN
     Indication: Renal disorder
  6. INSULIN NOS [Concomitant]
     Active Substance: INSULIN NOS
     Indication: Product used for unknown indication
     Dosage: 10 UNITS 2 TIMES PER DAY??15 UNITS WITH SCALE AT DINNER
     Route: 065
     Dates: start: 2008
  7. TRESIBA [Concomitant]
     Active Substance: INSULIN DEGLUDEC
     Indication: Product used for unknown indication
     Dosage: 40 UNITS AT BEDTIME
     Route: 065
     Dates: start: 2008
  8. TOUJEO [Concomitant]
     Active Substance: INSULIN GLARGINE
     Indication: Product used for unknown indication
     Dosage: 40 UNITS AT BEDTIME
     Route: 065
     Dates: start: 2008
  9. LEVEMIR [Concomitant]
     Active Substance: INSULIN DETEMIR
     Indication: Product used for unknown indication
     Dosage: 25 UNITS AT BEDTIME
     Route: 065
     Dates: start: 2008
  10. LANTUS [Concomitant]
     Active Substance: INSULIN GLARGINE
     Indication: Product used for unknown indication
     Route: 065
     Dates: start: 2008

REACTIONS (9)
  - Diabetic ketoacidosis [Recovered/Resolved]
  - Cardiac failure congestive [Unknown]
  - Renal failure [Recovering/Resolving]
  - Pneumothorax [Recovered/Resolved]
  - Pneumonia [Unknown]
  - Abnormal loss of weight [Unknown]
  - Arthralgia [Unknown]
  - Anxiety [Unknown]
  - Post thrombotic syndrome [Unknown]

NARRATIVE: CASE EVENT DATE: 20150101
